FAERS Safety Report 6375542-2 (Version None)
Quarter: 2009Q3

REPORT INFORMATION
  Report Type: 
  Country: None (occurrence: None)
  Receive Date: 20090924
  Receipt Date: 20090916
  Transmission Date: 20100115
  Serious: Yes (Other)
  Sender: FDA-Public Use
  Company Number: DK-GENENTECH-282062

PATIENT
  Age: 38 Year
  Sex: Female

DRUGS (1)
  1. HERCEPTIN [Suspect]
     Indication: DRUG USE FOR UNKNOWN INDICATION
     Dosage: 6 MG/KG, Q3W
     Route: 065

REACTIONS (2)
  - ABORTION THREATENED [None]
  - DRUG EXPOSURE DURING PREGNANCY [None]
